FAERS Safety Report 17429953 (Version 9)
Quarter: 2025Q1

REPORT INFORMATION
  Report Type: Spontaneous
  Country: US (occurrence: US)
  Receive Date: 20200218
  Receipt Date: 20250220
  Transmission Date: 20250408
  Serious: Yes (Disabling, Other)
  Sender: PFIZER
  Company Number: US-PFIZER INC-2020068611

PATIENT
  Age: 61 Year
  Sex: Female

DRUGS (11)
  1. XELJANZ XR [Suspect]
     Active Substance: TOFACITINIB CITRATE
     Indication: Arthritis
     Dosage: 11 MG, DAILY
     Route: 048
  2. VENLAFAXINE [Concomitant]
     Active Substance: VENLAFAXINE HYDROCHLORIDE
  3. ALLOPURINOL [Concomitant]
     Active Substance: ALLOPURINOL
  4. GABAPENTIN [Concomitant]
     Active Substance: GABAPENTIN
  5. FISH OIL [Concomitant]
     Active Substance: FISH OIL
  6. PREDNISONE [Concomitant]
     Active Substance: PREDNISONE
  7. ATENOLOL [Concomitant]
     Active Substance: ATENOLOL
  8. SIMVASTATIN [Concomitant]
     Active Substance: SIMVASTATIN
  9. METHOTREXATE [Concomitant]
     Active Substance: METHOTREXATE
  10. PRILOSEC [Concomitant]
     Active Substance: OMEPRAZOLE MAGNESIUM
  11. EFFEXOR [Concomitant]
     Active Substance: VENLAFAXINE HYDROCHLORIDE

REACTIONS (5)
  - Road traffic accident [Unknown]
  - Parkinson^s disease [Not Recovered/Not Resolved]
  - Nasopharyngitis [Unknown]
  - Gait disturbance [Unknown]
  - Impaired work ability [Unknown]
